FAERS Safety Report 4673744-4 (Version None)
Quarter: 2005Q2

REPORT INFORMATION
  Report Type: 
  Country: None (occurrence: None)
  Receive Date: 20050524
  Receipt Date: 20050511
  Transmission Date: 20051028
  Serious: Yes (Other)
  Sender: FDA-Public Use
  Company Number: 2005066263

PATIENT
  Age: 52 Year
  Sex: Male

DRUGS (2)
  1. CELECOXIB             (CELECOXIB) [Suspect]
     Indication: GOUT
     Dosage: 200 MG (1 D)
     Route: 048
     Dates: start: 20030421, end: 20030401
  2. INDOMETHACIN [Concomitant]

REACTIONS (5)
  - DEEP VEIN THROMBOSIS [None]
  - DIFFICULTY IN WALKING [None]
  - LIVEDO RETICULARIS [None]
  - MOBILITY DECREASED [None]
  - PROTHROMBIN TIME PROLONGED [None]
